FAERS Safety Report 6043110-8 (Version None)
Quarter: 2009Q1

REPORT INFORMATION
  Report Type: 
  Country: None (occurrence: None)
  Receive Date: 20090119
  Receipt Date: 20090108
  Transmission Date: 20090719
  Serious: Yes (Hospitalization)
  Sender: FDA-Public Use
  Company Number: IT-PFIZER INC-2007005609

PATIENT

DRUGS (7)
  1. SUNITINIB MALATE [Suspect]
     Indication: RENAL CELL CARCINOMA
     Dosage: 12.5 MG, 1X/DAY
     Route: 048
     Dates: start: 20060904, end: 20061226
  2. RANITIDINE [Concomitant]
     Route: 048
     Dates: start: 20060901, end: 20061230
  3. TORADOL [Concomitant]
     Route: 048
     Dates: start: 20060901, end: 20061230
  4. PREDNISONE [Concomitant]
     Route: 048
     Dates: start: 20061230
  5. OMEPRAZOLE [Concomitant]
     Route: 048
     Dates: start: 20061230
  6. GABAPENTIN [Concomitant]
     Route: 048
     Dates: start: 20061230
  7. ZOLPIDEM [Concomitant]
     Route: 048
     Dates: start: 20061230

REACTIONS (1)
  - LEUKOENCEPHALOPATHY [None]
